FAERS Safety Report 20734232 (Version 1)
Quarter: 2022Q2

REPORT INFORMATION
  Report Type: Spontaneous
  Country: CA (occurrence: None)
  Receive Date: 20220421
  Receipt Date: 20220421
  Transmission Date: 20220721
  Serious: Yes (Other)
  Sender: FDA-Public Use
  Company Number: CA-PFIZER INC-202200579989

PATIENT
  Age: 62 Year
  Sex: Female

DRUGS (2)
  1. METHOTREXATE [Suspect]
     Active Substance: METHOTREXATE
     Indication: Product used for unknown indication
     Route: 048
     Dates: start: 201604
  2. METHOTREXATE [Suspect]
     Active Substance: METHOTREXATE
     Dosage: 2.5 MG Q 2 X 2 DAYS X 90 DAYS
     Route: 048
     Dates: start: 2016

REACTIONS (3)
  - Nasal vestibulitis [Unknown]
  - Colitis ulcerative [Unknown]
  - Drug hypersensitivity [Unknown]

NARRATIVE: CASE EVENT DATE: 20220101
